FAERS Safety Report 21108499 (Version 2)
Quarter: 2022Q3

REPORT INFORMATION
  Report Type: Report from Study
  Country: US (occurrence: US)
  Receive Date: 20220721
  Receipt Date: 20220809
  Transmission Date: 20221027
  Serious: Yes (Hospitalization)
  Sender: FDA-Public Use
  Company Number: US-GILEAD-2022-0586893

PATIENT
  Sex: Male
  Weight: 72.7 kg

DRUGS (18)
  1. SACITUZUMAB GOVITECAN [Suspect]
     Active Substance: SACITUZUMAB GOVITECAN
     Indication: Tongue cancer metastatic
     Dosage: 10 MG/KG, DAYS 1 AND 8 EACH 21-DAY CYCLE
     Route: 042
     Dates: start: 20220420
  2. NORVASC [Concomitant]
     Active Substance: AMLODIPINE BESYLATE
     Indication: Hypertension
     Dosage: UNK
     Dates: start: 202010
  3. DECADRON [Concomitant]
     Active Substance: DEXAMETHASONE
     Indication: Oedema
     Dosage: UNK
     Dates: start: 20220325
  4. CYMBALTA [Concomitant]
     Active Substance: DULOXETINE HYDROCHLORIDE
     Indication: Anxiety
     Dosage: UNK
     Dates: start: 2018
  5. EPINEPHRINE [Concomitant]
     Active Substance: EPINEPHRINE
     Dosage: UNK
     Dates: start: 202010
  6. PEPCID [Concomitant]
     Active Substance: FAMOTIDINE
     Dosage: UNK
     Dates: start: 202010
  7. NORCO [Concomitant]
     Active Substance: ACETAMINOPHEN\HYDROCODONE BITARTRATE
     Indication: Pain
     Dosage: UNK
     Dates: start: 202009
  8. IBUPROFEN [Concomitant]
     Active Substance: IBUPROFEN
     Indication: Pain
     Dosage: UNK
     Dates: start: 202009
  9. GLUCOPHAGE [Concomitant]
     Active Substance: METFORMIN HYDROCHLORIDE
     Indication: Type 2 diabetes mellitus
     Dosage: UNK
     Dates: start: 202009
  10. PROVIGIL [Concomitant]
     Active Substance: MODAFINIL
     Indication: Sleep disorder
     Dosage: UNK
     Dates: start: 202009
  11. ZYPREXA ZYDIS [Concomitant]
     Active Substance: OLANZAPINE
     Indication: Sleep disorder
     Dosage: UNK
  12. ZOFRAN [Concomitant]
     Active Substance: ONDANSETRON HYDROCHLORIDE
     Indication: Nausea
     Dosage: UNK
     Dates: start: 202010
  13. CRESTOR [Concomitant]
     Active Substance: ROSUVASTATIN CALCIUM
     Indication: Hyperlipidaemia
     Dosage: UNK
     Dates: start: 2010
  14. TESTOSTERONE CYPIONATE [Concomitant]
     Active Substance: TESTOSTERONE CYPIONATE
     Indication: Blood testosterone decreased
     Dosage: UNK
     Dates: start: 2018
  15. ZARXIO [Concomitant]
     Active Substance: FILGRASTIM-SNDZ
     Indication: Neutropenia
     Dosage: UNK
     Dates: start: 20220608, end: 20220610
  16. PHENERGAN [Concomitant]
     Active Substance: PROMETHAZINE HYDROCHLORIDE
     Indication: Nausea
     Dosage: UNK
     Dates: start: 20220606
  17. PROCHLORPERAZINE EDISYLATE [Concomitant]
     Active Substance: PROCHLORPERAZINE EDISYLATE
     Indication: Nausea
     Dosage: UNK
     Dates: start: 20220606
  18. ATROPINE\DIPHENOXYLATE [Concomitant]
     Active Substance: ATROPINE\DIPHENOXYLATE
     Indication: Diarrhoea
     Dosage: UNK
     Dates: start: 20220608

REACTIONS (1)
  - Pneumonia aspiration [Recovered/Resolved with Sequelae]

NARRATIVE: CASE EVENT DATE: 20220617
